FAERS Safety Report 19724306 (Version 1)
Quarter: 2021Q3

REPORT INFORMATION
  Report Type: Spontaneous
  Country: UM (occurrence: UM)
  Receive Date: 20210819
  Receipt Date: 20210819
  Transmission Date: 20211014
  Serious: Yes (Other)
  Sender: FDA-Public Use
  Company Number: UM-ROCHE-2890239

PATIENT
  Sex: Female

DRUGS (2)
  1. KEPPRA [Concomitant]
     Active Substance: LEVETIRACETAM
  2. OCREVUS [Suspect]
     Active Substance: OCRELIZUMAB
     Indication: MULTIPLE SCLEROSIS
     Route: 065

REACTIONS (1)
  - Agranulocytosis [Unknown]
